FAERS Safety Report 15450881 (Version 1)
Quarter: 2018Q4

REPORT INFORMATION
  Report Type: Other
  Country: PL (occurrence: PL)
  Receive Date: 20181001
  Receipt Date: 20181001
  Transmission Date: 20190204
  Serious: Yes (Hospitalization, Other)
  Sender: FDA-Public Use
  Company Number: PL-APOTEX-2018AP021193

PATIENT
  Age: 30 Year
  Sex: Female

DRUGS (15)
  1. LEVETIRACETAM. [Suspect]
     Active Substance: LEVETIRACETAM
     Indication: JUVENILE MYOCLONIC EPILEPSY
     Dosage: ABOUT 5 YEARS, AT MAXIMUM ACCEPTABLE DOSES
     Route: 065
  2. VALPROIC ACID                      /00228502/ [Suspect]
     Active Substance: VALPROATE SODIUM
     Indication: SEIZURE
     Dosage: 1000 MG, UNK
     Route: 048
  3. LAMOTRIGINE. [Suspect]
     Active Substance: LAMOTRIGINE
     Indication: JUVENILE MYOCLONIC EPILEPSY
     Dosage: UNK, FOR ABOUT 5 YEARS, AT MAXIMUM ACCEPTABLE DOSES
     Route: 065
  4. VALPROIC ACID                      /00228502/ [Suspect]
     Active Substance: VALPROATE SODIUM
     Indication: JUVENILE MYOCLONIC EPILEPSY
     Dosage: 1000 MG, AT HIGH DOSES
     Route: 065
  5. VALPROIC ACID                      /00228502/ [Suspect]
     Active Substance: VALPROATE SODIUM
     Indication: SEIZURE
     Dosage: PROLONGED-RELEASE DRUGS, UNKNOWN DOSE
     Route: 065
  6. VALPROIC ACID                      /00228502/ [Suspect]
     Active Substance: VALPROATE SODIUM
     Indication: JUVENILE MYOCLONIC EPILEPSY
     Dosage: 1000 MG, QD
     Route: 048
  7. VALPROIC ACID                      /00228502/ [Suspect]
     Active Substance: VALPROATE SODIUM
     Indication: JUVENILE MYOCLONIC EPILEPSY
     Dosage: 3000 MG, QD
     Route: 065
  8. VALPROIC ACID                      /00228502/ [Suspect]
     Active Substance: VALPROATE SODIUM
     Dosage: 2000 MG, QD, HIGH DOSES
     Route: 065
  9. VALPROIC ACID                      /00228502/ [Suspect]
     Active Substance: VALPROATE SODIUM
     Indication: SEIZURE
     Dosage: 2000 MG, QD
     Route: 065
  10. VALPROIC ACID                      /00228502/ [Suspect]
     Active Substance: VALPROATE SODIUM
     Indication: JUVENILE MYOCLONIC EPILEPSY
     Dosage: UNK
     Route: 042
  11. VALPROIC ACID                      /00228502/ [Suspect]
     Active Substance: VALPROATE SODIUM
     Indication: SEIZURE
     Dosage: 1000 MG, UNK
     Route: 048
  12. VALPROIC ACID                      /00228502/ [Suspect]
     Active Substance: VALPROATE SODIUM
     Indication: JUVENILE MYOCLONIC EPILEPSY
     Dosage: 1000 MG, UNK
     Route: 048
  13. VALPROIC ACID                      /00228502/ [Suspect]
     Active Substance: VALPROATE SODIUM
     Indication: SEIZURE
     Dosage: UNK, PROLONG RELEASE DRUG
     Route: 048
  14. VALPROIC ACID                      /00228502/ [Suspect]
     Active Substance: VALPROATE SODIUM
     Indication: SEIZURE
     Dosage: UNK
     Route: 042
  15. VALPROIC ACID                      /00228502/ [Suspect]
     Active Substance: VALPROATE SODIUM
     Indication: SEIZURE
     Dosage: 2000 MG, QD, ENTERIC-COATED FAST-RELEASING TABLETS INCREASED TO 3000 MG PER DAY
     Route: 048

REACTIONS (9)
  - Myoclonus [Recovering/Resolving]
  - Malabsorption [Recovered/Resolved]
  - Seizure [Not Recovered/Not Resolved]
  - Seizure [Recovered/Resolved]
  - Generalised tonic-clonic seizure [Recovering/Resolving]
  - Drug level decreased [Recovered/Resolved]
  - Petit mal epilepsy [Recovering/Resolving]
  - Drug ineffective [Unknown]
  - Drug ineffective [Recovered/Resolved]

NARRATIVE: CASE EVENT DATE: 2014
